FAERS Safety Report 9016269 (Version 2)
Quarter: 2013Q1

REPORT INFORMATION
  Report Type: Spontaneous
  Country: US (occurrence: US)
  Receive Date: 20130116
  Receipt Date: 20130124
  Transmission Date: 20140127
  Serious: Yes (Death, Hospitalization)
  Sender: FDA-Public Use
  Company Number: US-BAXTER-2013BAX001252

PATIENT
  Age: 57 Year
  Sex: Male

DRUGS (1)
  1. DIANEAL LOW CALCIUM (ULTRABAG) [Suspect]
     Indication: PERITONEAL DIALYSIS
     Route: 033
     Dates: end: 20121213

REACTIONS (8)
  - Cardiac arrest [Fatal]
  - Cardiac failure [Fatal]
  - Fall [Recovering/Resolving]
  - Abdominal injury [Recovering/Resolving]
  - Wound infection [Recovering/Resolving]
  - Cerebrovascular accident [Unknown]
  - Device related infection [Recovering/Resolving]
  - Hypotension [Recovering/Resolving]
